FAERS Safety Report 23685723 (Version 1)
Quarter: 2024Q1

REPORT INFORMATION
  Report Type: Spontaneous
  Country: PL (occurrence: PL)
  Receive Date: 20240329
  Receipt Date: 20240329
  Transmission Date: 20240410
  Serious: Yes (Hospitalization, Other)
  Sender: FDA-Public Use
  Company Number: PL-AMGEN-POLSP2024059639

PATIENT
  Age: 71 Year
  Sex: Female

DRUGS (8)
  1. KYPROLIS [Suspect]
     Active Substance: CARFILZOMIB
     Indication: Plasma cell myeloma
     Dosage: UNK
     Route: 065
     Dates: start: 20210727
  2. FILGRASTIM [Suspect]
     Active Substance: FILGRASTIM
     Indication: Plasma cell myeloma
     Dosage: UNK
     Route: 065
  3. DEXAMETHASONE [Suspect]
     Active Substance: DEXAMETHASONE
     Indication: Plasma cell myeloma
     Dosage: UNK
     Route: 065
  4. DEXAMETHASONE [Suspect]
     Active Substance: DEXAMETHASONE
     Dosage: 20 MILLIGRAM, DOSE REDUCED
     Route: 065
  5. CYCLOPHOSPHAMIDE [Concomitant]
     Active Substance: CYCLOPHOSPHAMIDE
     Indication: Plasma cell myeloma
     Dosage: UNK
     Route: 065
  6. MELPHALAN [Concomitant]
     Active Substance: MELPHALAN
     Indication: Plasma cell myeloma
     Dosage: UNK
     Route: 065
     Dates: start: 20150521
  7. BORTEZOMIB [Concomitant]
     Active Substance: BORTEZOMIB
     Indication: Plasma cell myeloma
     Dosage: UNK
     Route: 065
  8. DOXORUBICIN [Concomitant]
     Active Substance: DOXORUBICIN
     Indication: Plasma cell myeloma
     Dosage: UNK
     Route: 065

REACTIONS (8)
  - Plasma cell myeloma [Unknown]
  - Spinal compression fracture [Unknown]
  - Monoparesis [Recovered/Resolved]
  - Infection [Unknown]
  - Upper respiratory tract infection [Unknown]
  - Anaemia [Unknown]
  - Blood uric acid increased [Unknown]
  - Gait inability [Unknown]

NARRATIVE: CASE EVENT DATE: 20140101
